FAERS Safety Report 8939781 (Version 3)
Quarter: 2013Q2

REPORT INFORMATION
  Report Type: Spontaneous
  Country: US (occurrence: US)
  Receive Date: 20121203
  Receipt Date: 20130508
  Transmission Date: 20140414
  Serious: Yes (Other)
  Sender: FDA-Public Use
  Company Number: US-PFIZER INC-2012302179

PATIENT
  Age: 69 Year
  Sex: Female
  Weight: 67.12 kg

DRUGS (5)
  1. LIPITOR [Suspect]
     Indication: BLOOD CHOLESTEROL INCREASED
     Dosage: 80 MG, DAILY
  2. LIPITOR [Suspect]
     Dosage: 20 MG, UNK
  3. LIPITOR [Suspect]
     Dosage: 40 MG DAILY
     Route: 048
  4. VITAMIN B12 [Concomitant]
     Indication: VITAMIN B12 DECREASED
     Dosage: 1000 MG, DAILY
  5. VITAMIN D [Concomitant]
     Dosage: 800 MG, DAILY

REACTIONS (3)
  - Cardiac disorder [Recovering/Resolving]
  - Drug ineffective [Recovering/Resolving]
  - Myalgia [Recovering/Resolving]
